FAERS Safety Report 6492332-0 (Version None)
Quarter: 2009Q4

REPORT INFORMATION
  Report Type: 
  Country: None (occurrence: None)
  Receive Date: 20091208
  Receipt Date: 20091124
  Transmission Date: 20100525
  Serious: Yes (Hospitalization, Other)
  Sender: FDA-Public Use
  Company Number: ADR52712009

PATIENT
  Age: 71 Year
  Sex: Female

DRUGS (10)
  1. METFORMIN HCL [Suspect]
     Dosage: 1 GM - BID, ORAL
     Route: 048
  2. ATENOLOL [Concomitant]
  3. ALLOPURINOL [Concomitant]
  4. ASPIRIN [Concomitant]
  5. BENDROFLUMETHIAZIDE [Concomitant]
  6. CLOPIDOGREL [Concomitant]
  7. DOXAZOSIN [Concomitant]
  8. IRBESARTAN [Concomitant]
  9. PERINDOPRIL [Concomitant]
  10. GLICLAZIDE [Concomitant]

REACTIONS (9)
  - ALCOHOL USE [None]
  - COMA [None]
  - DRUG INTERACTION [None]
  - FALL [None]
  - HYPOGLYCAEMIA [None]
  - HYPOTHERMIA [None]
  - LACTIC ACIDOSIS [None]
  - RENAL CYST [None]
  - RENAL FAILURE ACUTE [None]
